FAERS Safety Report 5297557-8 (Version None)
Quarter: 2007Q2

REPORT INFORMATION
  Report Type: 
  Country: None (occurrence: None)
  Receive Date: 20070416
  Receipt Date: 20070402
  Transmission Date: 20071010
  Serious: Yes (Hospitalization)
  Sender: FDA-Public Use
  Company Number: PHEH2007US03966

PATIENT
  Age: 70 Year
  Sex: Female

DRUGS (1)
  1. ZELNORM [Suspect]
     Indication: CONSTIPATION
     Dosage: 6 MG, BID
     Dates: end: 20070330

REACTIONS (3)
  - ANGINA PECTORIS [None]
  - INFLUENZA [None]
  - MYOCARDIAL INFARCTION [None]
